FAERS Safety Report 14911582 (Version 3)
Quarter: 2018Q3

REPORT INFORMATION
  Report Type: Report from Study
  Country: ES (occurrence: ES)
  Receive Date: 20180518
  Receipt Date: 20180823
  Transmission Date: 20181010
  Serious: Yes (Life-Threatening, Hospitalization)
  Sender: FDA-Public Use
  Company Number: ES-TEVA-2018-ES-894400

PATIENT
  Age: 75 Year
  Sex: Male

DRUGS (5)
  1. PARAPRES 32 MG COMPRIMIDOS, 28 COMPRIMIDOS [Concomitant]
     Indication: HYPERTENSION
     Dosage: 32 MILLIGRAM DAILY;
     Route: 048
     Dates: start: 201508, end: 20160918
  2. BISOPROLOL (2328A) [Concomitant]
     Active Substance: BISOPROLOL
     Indication: ATRIAL FIBRILLATION
     Dosage: 1.25 MILLIGRAM DAILY;
     Route: 048
     Dates: start: 201512
  3. SIMVASTATIN. [Suspect]
     Active Substance: SIMVASTATIN
     Indication: HYPERLIPIDAEMIA
     Dosage: 20 MILLIGRAM DAILY;
     Route: 048
     Dates: start: 201508, end: 20160918
  4. HIDROSALURETIL 50 MG COMPRIMIDOS EFG , 20 COMPRIMIDOS [Concomitant]
     Active Substance: HYDROCHLOROTHIAZIDE
     Indication: HYPERTENSION
     Route: 048
     Dates: start: 201508
  5. SINTROM [Interacting]
     Active Substance: ACENOCOUMAROL
     Indication: ATRIAL FIBRILLATION
     Route: 048
     Dates: start: 20151119, end: 20160918

REACTIONS (3)
  - Cerebellar haematoma [Recovering/Resolving]
  - Labelled drug-drug interaction medication error [Recovering/Resolving]
  - Drug interaction [Unknown]

NARRATIVE: CASE EVENT DATE: 20160917
